FAERS Safety Report 6832245-5 (Version None)
Quarter: 2010Q2

REPORT INFORMATION
  Report Type: 
  Country: None (occurrence: None)
  Receive Date: 20100629
  Receipt Date: 20100622
  Transmission Date: 20101027
  Serious: Yes (Other)
  Sender: FDA-Public Use
  Company Number: 2010023330

PATIENT
  Sex: Female
  Weight: 108.8633 kg

DRUGS (5)
  1. BERINERT [Suspect]
     Indication: HEREDITARY ANGIOEDEMA
     Dosage: SEE IMAGE
     Route: 042
     Dates: start: 20100414, end: 20100414
  2. BERINERT [Suspect]
     Indication: HEREDITARY ANGIOEDEMA
     Dosage: SEE IMAGE
     Route: 042
     Dates: start: 20100429, end: 20100429
  3. DANAZOL [Concomitant]
  4. EXCEDRIN E.S. (THOMAPYRIN N) [Concomitant]
  5. PULMICORT [Concomitant]

REACTIONS (12)
  - ABDOMINAL DISTENSION [None]
  - ABDOMINAL PAIN UPPER [None]
  - DIARRHOEA [None]
  - FEELING HOT [None]
  - FLUSHING [None]
  - GENITAL SWELLING [None]
  - HEREDITARY ANGIOEDEMA [None]
  - OEDEMA PERIPHERAL [None]
  - REFUSAL OF TREATMENT BY PATIENT [None]
  - STEVENS-JOHNSON SYNDROME [None]
  - THROAT IRRITATION [None]
  - VOMITING [None]
